FAERS Safety Report 7532351-6 (Version None)
Quarter: 2011Q2

REPORT INFORMATION
  Report Type: 
  Country: None (occurrence: None)
  Receive Date: 20110608
  Receipt Date: 20110603
  Transmission Date: 20111010
  Serious: Yes (Disabling, Other)
  Sender: FDA-Public Use
  Company Number: US-PFIZER INC-2010006389

PATIENT
  Sex: Male

DRUGS (4)
  1. REQUIP [Concomitant]
     Indication: RESTLESS LEGS SYNDROME
     Dosage: UNK
     Dates: start: 20070401, end: 20080501
  2. WELLBUTRIN [Concomitant]
     Indication: DEPRESSION
     Dosage: UNK
     Dates: start: 20050401
  3. LITHIUM [Concomitant]
     Indication: DEPRESSION
     Dosage: UNK
     Dates: start: 20041001
  4. CHANTIX [Suspect]
     Indication: SMOKING CESSATION THERAPY
     Dosage: 1 MG, UNK
     Dates: start: 20071024, end: 20071226

REACTIONS (5)
  - SUICIDE ATTEMPT [None]
  - ANXIETY [None]
  - DISTURBANCE IN ATTENTION [None]
  - MAJOR DEPRESSION [None]
  - AMNESIA [None]
